FAERS Safety Report 12434304 (Version 2)
Quarter: 2016Q3

REPORT INFORMATION
  Report Type: Spontaneous
  Country: US (occurrence: US)
  Receive Date: 20160603
  Receipt Date: 20160706
  Transmission Date: 20161109
  Serious: Yes (Other)
  Sender: FDA-Public Use
  Company Number: US-TEVA-663611USA

PATIENT
  Age: 67 Year
  Sex: Male
  Weight: 106.69 kg

DRUGS (1)
  1. DIAMOX SEQUELS [Suspect]
     Active Substance: ACETAZOLAMIDE
     Indication: GLAUCOMA
     Dosage: 1000 MILLIGRAM DAILY;
     Route: 048
     Dates: start: 20160429, end: 20160513

REACTIONS (10)
  - Arthralgia [Not Recovered/Not Resolved]
  - Joint swelling [Not Recovered/Not Resolved]
  - Aggression [Recovered/Resolved]
  - Paralysis [Unknown]
  - Mood altered [Recovered/Resolved]
  - Muscle disorder [Unknown]
  - Anger [Recovered/Resolved]
  - Rash [Recovered/Resolved with Sequelae]
  - Abnormal behaviour [Recovered/Resolved]
  - Agitation [Recovered/Resolved]

NARRATIVE: CASE EVENT DATE: 2016
